FAERS Safety Report 20129237 (Version 2)
Quarter: 2021Q4

REPORT INFORMATION
  Report Type: Spontaneous
  Country: US (occurrence: US)
  Receive Date: 20211130
  Receipt Date: 20211217
  Transmission Date: 20220303
  Serious: Yes (Hospitalization)
  Sender: FDA-Public Use
  Company Number: US-SA-SAC20211128000516

PATIENT
  Sex: Female

DRUGS (12)
  1. DUPIXENT [Suspect]
     Active Substance: DUPILUMAB
     Indication: Asthma
     Dosage: 400 MG, 1X
     Route: 058
  2. DUPIXENT [Suspect]
     Active Substance: DUPILUMAB
     Indication: Lung disorder
     Dosage: 200 MG, QOW
     Route: 050
  3. DUPIXENT [Suspect]
     Active Substance: DUPILUMAB
     Indication: Chronic obstructive pulmonary disease
  4. DUPIXENT [Suspect]
     Active Substance: DUPILUMAB
     Indication: Dyspnoea
  5. SYMBICORT [Concomitant]
     Active Substance: BUDESONIDE\FORMOTEROL FUMARATE DIHYDRATE
  6. MONTELUKAST [Concomitant]
     Active Substance: MONTELUKAST SODIUM
  7. FLUTICASONE PROPIONATE [Concomitant]
     Active Substance: FLUTICASONE PROPIONATE
  8. LOSARTAN [Concomitant]
     Active Substance: LOSARTAN
  9. HYDRALAZINE [Concomitant]
     Active Substance: HYDRALAZINE HYDROCHLORIDE
  10. AMLODIPINE [Concomitant]
     Active Substance: AMLODIPINE BESYLATE
  11. LEVOTHYROXINE [Concomitant]
     Active Substance: LEVOTHYROXINE
  12. CARVEDILOL [Concomitant]
     Active Substance: CARVEDILOL

REACTIONS (8)
  - Asthma [Unknown]
  - Injection site indentation [Recovering/Resolving]
  - Wrong technique in device usage process [Recovering/Resolving]
  - Injection site pain [Unknown]
  - Erythema [Unknown]
  - Skin swelling [Unknown]
  - Pruritus [Unknown]
  - Product use in unapproved indication [Unknown]
